FAERS Safety Report 23089632 (Version 1)
Quarter: 2023Q4

REPORT INFORMATION
  Report Type: Report from Study
  Country: KR (occurrence: KR)
  Receive Date: 20231020
  Receipt Date: 20231020
  Transmission Date: 20240109
  Serious: Yes (Other)
  Sender: FDA-Public Use
  Company Number: KR-MYLANLABS-2023M1109714

PATIENT
  Sex: Female
  Weight: 60.6 kg

DRUGS (25)
  1. TRASTUZUMAB [Suspect]
     Active Substance: TRASTUZUMAB
     Indication: Breast cancer female
     Dosage: 363 MILLIGRAM, Q3W (3 WEEKS)
     Route: 042
     Dates: start: 20190104
  2. SARPOGRELATE HYDROCHLORIDE [Concomitant]
     Active Substance: SARPOGRELATE HYDROCHLORIDE
     Dosage: 300 MILLIGRAM, QD
     Route: 048
     Dates: start: 20181215
  3. ESOMEPRAZOLE MAGNESIUM [Concomitant]
     Active Substance: ESOMEPRAZOLE\ESOMEPRAZOLE MAGNESIUM\ESOMEPRAZOLE MAGNESIUM DIHYDRATE
     Dosage: 20 MILLIGRAM, QD
     Route: 048
     Dates: start: 20181211
  4. CELECOXIB [Concomitant]
     Active Substance: CELECOXIB
     Dosage: 200 MILLIGRAM, BID
     Route: 048
     Dates: start: 20190102
  5. LIPITOR [Concomitant]
     Active Substance: ATORVASTATIN CALCIUM
     Dosage: 10 MILLIGRAM, QD
     Route: 048
     Dates: start: 20181211
  6. LAFUTIDINE [Concomitant]
     Active Substance: LAFUTIDINE
     Dosage: 10 MILLIGRAM, BID (0.5 DAY)
     Route: 048
     Dates: start: 20180102
  7. LEVOTHYROXINE SODIUM [Concomitant]
     Active Substance: LEVOTHYROXINE SODIUM
     Indication: Hypothyroidism
     Dosage: 0.075 MILLIGRAM, QD
     Route: 048
     Dates: start: 2013
  8. PREGABALIN [Concomitant]
     Active Substance: PREGABALIN
     Dosage: 150 MILLIGRAM, BID (0.5 DAY)
     Route: 048
     Dates: start: 20190104
  9. CHLORPHENAMINE;DIHYDROCODEINE;GUAIFENESIN;METHYLEPHEDRINE [Concomitant]
     Indication: Cough
     Dosage: 1 DOSAGE FORM, 0.33 DAYS
     Route: 048
     Dates: end: 20190218
  10. ACETAMINOPHEN [Concomitant]
     Active Substance: ACETAMINOPHEN
     Indication: Cough
     Dosage: 650 MILLIGRAM, 0.33 DAYS
     Route: 048
     Dates: end: 20190223
  11. MONTMORILLONITE [Concomitant]
     Active Substance: MONTMORILLONITE
     Dosage: 3 GRAM, QD (09-FEB-2019)
     Route: 048
     Dates: end: 20190213
  12. RANITIDINE HYDROCHLORIDE [Concomitant]
     Active Substance: RANITIDINE HYDROCHLORIDE
     Dosage: 100 MILLIGRAM, QD
     Route: 042
     Dates: end: 20190218
  13. DEXAMETHASONE [Concomitant]
     Active Substance: DEXAMETHASONE
     Dosage: 1 DOSAGE FORM, QD
     Route: 042
     Dates: end: 20190218
  14. CHLORPHENIRAMINE MALEATE [Concomitant]
     Active Substance: CHLORPHENIRAMINE MALEATE
     Dosage: 4 MILLIGRAM, QD
     Route: 042
     Dates: end: 20190218
  15. PALONOSETRON HYDROCHLORIDE [Concomitant]
     Active Substance: PALONOSETRON HYDROCHLORIDE
     Dosage: 0.25 MILLIGRAM, QD
     Route: 042
     Dates: end: 20190218
  16. GLUTATHIONE [Concomitant]
     Active Substance: GLUTATHIONE
     Indication: Breast cancer female
     Dosage: 1800 MILLIGRAM, QD
     Route: 042
     Dates: end: 20190218
  17. HEPARIN SODIUM [Concomitant]
     Active Substance: HEPARIN SODIUM
     Dosage: 5 MILLILITER, QD
     Route: 058
     Dates: end: 20190218
  18. DOCETAXEL ANHYDROUS [Concomitant]
     Active Substance: DOCETAXEL ANHYDROUS
     Indication: Breast cancer female
     Dosage: 94 MILLIGRAM, QD
     Route: 042
     Dates: end: 20190218
  19. CARBOPLATIN [Concomitant]
     Active Substance: CARBOPLATIN
     Indication: Breast cancer female
     Dosage: 605 MILLIGRAM, QD
     Route: 042
     Dates: end: 20190218
  20. DEXTROSE\SODIUM CHLORIDE [Concomitant]
     Active Substance: DEXTROSE\SODIUM CHLORIDE
     Dosage: 50 MILLILITER
     Route: 042
     Dates: end: 20190218
  21. DEXTROSE\SODIUM CHLORIDE [Concomitant]
     Active Substance: DEXTROSE\SODIUM CHLORIDE
     Dosage: 500 MILLIMETRE
     Route: 042
     Dates: end: 20190219
  22. DEXAMETHASONE [Concomitant]
     Active Substance: DEXAMETHASONE
     Dosage: 6 MILLIGRAM, QD
     Route: 048
     Dates: end: 20190223
  23. ASCORBIC ACID [Concomitant]
     Active Substance: ASCORBIC ACID
     Dosage: 1 DOSAGE FORM, QD
     Route: 042
     Dates: end: 20190219
  24. THIOCTIC ACID [Concomitant]
     Active Substance: THIOCTIC ACID
     Dosage: 1 DOSAGE FORM, QD
     Route: 042
     Dates: end: 20190219
  25. SODIUM SELENITE PENTAHYDRATE [Concomitant]
     Dosage: 1 DOSAGE FORM, QD
     Route: 042
     Dates: end: 20190218

REACTIONS (1)
  - Device related infection [Recovering/Resolving]

NARRATIVE: CASE EVENT DATE: 20190209
